FAERS Safety Report 4445637-9 (Version None)
Quarter: 2004Q3

REPORT INFORMATION
  Report Type: 
  Country: None (occurrence: None)
  Receive Date: 20040907
  Receipt Date: 20040819
  Transmission Date: 20050211
  Serious: Yes (Hospitalization)
  Sender: FDA-Public Use
  Company Number: 200412541JP

PATIENT
  Age: 62 Year
  Sex: Male
  Weight: 50 kg

DRUGS (12)
  1. TELITHROMYCIN (KETEK) TABLETS [Suspect]
     Indication: EMPHYSEMA
     Dosage: 600 MG/DAY PO
     Route: 048
     Dates: start: 20040716, end: 20040720
  2. TELITHROMYCIN (KETEK) TABLETS [Suspect]
     Indication: SINUSITIS
     Dosage: 600 MG/DAY PO
     Route: 048
     Dates: start: 20040716, end: 20040720
  3. LORATADINE (CLARITIN) [Concomitant]
  4. LANSOPRAZOLE [Concomitant]
  5. IMIDAPRIL HYDROCHLORIDE [Concomitant]
  6. BENZBROMARONE [Concomitant]
  7. LECITHIN [Concomitant]
  8. DILITIAZEM HYDROCHLORIDE [Concomitant]
  9. CYSTEINE, AMINOACETIC ACID, GLYCYRRHIZIC ACID (STRONG NEO-MINOPHAGEN C [Concomitant]
  10. JUSTLVON [Concomitant]
  11. OHNES [Concomitant]
  12. SERIPLAN [Concomitant]

REACTIONS (3)
  - ADENOMYOSIS [None]
  - CONDITION AGGRAVATED [None]
  - HEPATITIS CHOLESTATIC [None]
